FAERS Safety Report 8425553-8 (Version None)
Quarter: 2012Q2

REPORT INFORMATION
  Report Type: 
  Country: None (occurrence: None)
  Receive Date: 20120531
  Receipt Date: 20120522
  Transmission Date: 20120825
  Serious: Yes (Hospitalization)
  Sender: FDA-Public Use
  Company Number: 2012SP023220

PATIENT
  Age: 81 Year
  Sex: Male

DRUGS (5)
  1. ROCURONIUM BROMIDE [Suspect]
     Indication: ANAESTHESIA
     Dosage: 40 MG; ONCE; IV
     Route: 042
     Dates: start: 20120403, end: 20120403
  2. PERINDOPRIL ERBUMINE [Suspect]
     Indication: HYPERTENSION
     Dosage: 5 MG; QD; PO
     Route: 048
     Dates: start: 20100101, end: 20120403
  3. PROPOFOL [Suspect]
     Indication: ANAESTHESIA
     Dosage: 130 MCG; ONCE; IV
     Route: 042
     Dates: start: 20120403, end: 20120403
  4. ULTIVA [Suspect]
     Indication: ANAESTHESIA
     Dosage: 2 MG; ONCE; IV
     Route: 042
     Dates: start: 20120403, end: 20120403
  5. ACETAMINOPHEN [Concomitant]

REACTIONS (1)
  - TONGUE OEDEMA [None]
